FAERS Safety Report 9569830 (Version 1)
Quarter: 2013Q3

REPORT INFORMATION
  Report Type: Spontaneous
  Country: US (occurrence: US)
  Receive Date: 20130930
  Receipt Date: 20130930
  Transmission Date: 20140515
  Serious: Yes (Other)
  Sender: FDA-Public Use
  Company Number: US-AMGEN-USASP2013065352

PATIENT
  Age: 78 Year
  Sex: Male

DRUGS (2)
  1. ENBREL [Suspect]
     Indication: RHEUMATOID ARTHRITIS
     Dosage: 50MG ONCE A WEEK
     Route: 065
     Dates: start: 201204
  2. METHOTREXATE [Concomitant]
     Dosage: 2 TABLETS A WEEK

REACTIONS (3)
  - Lyme disease [Recovered/Resolved]
  - Arthropod bite [Recovered/Resolved]
  - Nasal vestibulitis [Not Recovered/Not Resolved]
